FAERS Safety Report 17574449 (Version 1)
Quarter: 2020Q1

REPORT INFORMATION
  Report Type: Spontaneous
  Country: US (occurrence: US)
  Receive Date: 20200324
  Receipt Date: 20200324
  Transmission Date: 20200409
  Serious: No
  Sender: FDA-Public Use
  Company Number: US-AUROBINDO-AUR-APL-2019-062362

PATIENT
  Age: 69 Year
  Sex: Female
  Weight: 60 kg

DRUGS (3)
  1. GABAPENTIN CAPSULES 300 MG [Suspect]
     Active Substance: GABAPENTIN
     Indication: HYPERTHYROIDISM
  2. GABAPENTIN CAPSULES 300 MG [Suspect]
     Active Substance: GABAPENTIN
     Indication: MUSCLE SPASMS
     Dosage: UNK UNK, TWO TIMES A DAY
     Route: 065
     Dates: start: 201908
  3. GABAPENTIN CAPSULES 300 MG [Suspect]
     Active Substance: GABAPENTIN
     Indication: MANIA

REACTIONS (9)
  - Insomnia [Unknown]
  - Balance disorder [Unknown]
  - Memory impairment [Unknown]
  - Euphoric mood [Unknown]
  - Dysstasia [Unknown]
  - Speech disorder [Unknown]
  - Product use in unapproved indication [Unknown]
  - Illogical thinking [Unknown]
  - Product dose omission [Unknown]

NARRATIVE: CASE EVENT DATE: 201908
